FAERS Safety Report 8764125 (Version 4)
Quarter: 2014Q3

REPORT INFORMATION
  Report Type: Spontaneous
  Country: US (occurrence: US)
  Receive Date: 20120831
  Receipt Date: 20140801
  Transmission Date: 20150326
  Serious: Yes (Hospitalization, Other)
  Sender: FDA-Public Use
  Company Number: US-009507513-1208USA011540

PATIENT
  Sex: Female
  Weight: 102.4 kg

DRUGS (1)
  1. NUVARING [Suspect]
     Active Substance: ETHINYL ESTRADIOL\ETONOGESTREL
     Indication: CONTRACEPTION
     Dosage: UNK
     Dates: start: 2004, end: 20100802

REACTIONS (7)
  - Pulmonary embolism [Unknown]
  - Thrombosis [Unknown]
  - Gastrooesophageal reflux disease [Unknown]
  - Depression [Unknown]
  - Vaginal haemorrhage [Unknown]
  - Cerebral venous thrombosis [Unknown]
  - Anxiety [Unknown]

NARRATIVE: CASE EVENT DATE: 20100319
